FAERS Safety Report 23657116 (Version 2)
Quarter: 2025Q1

REPORT INFORMATION
  Report Type: Spontaneous
  Country: FR (occurrence: FR)
  Receive Date: 20240321
  Receipt Date: 20250115
  Transmission Date: 20250409
  Serious: Yes (Other)
  Sender: PFIZER
  Company Number: None

PATIENT
  Age: 57 Year
  Sex: Female
  Weight: 61.3 kg

DRUGS (5)
  1. LINEZOLID [Suspect]
     Active Substance: LINEZOLID
     Indication: Sepsis
     Dosage: 1200 MG, 1X/DAY
     Route: 048
     Dates: start: 20231227, end: 20240109
  2. CYTARABINE [Suspect]
     Active Substance: CYTARABINE
     Indication: Acute myeloid leukaemia
     Dosage: 280 MG, 1X/DAY
     Route: 042
     Dates: start: 20231229, end: 20240104
  3. IDARUBICIN [Suspect]
     Active Substance: IDARUBICIN
     Indication: Acute myeloid leukaemia
     Dosage: 17 MG, 1X/DAY
     Route: 042
     Dates: start: 20231229, end: 20231231
  4. CEFTAZIDIME [Suspect]
     Active Substance: CEFTAZIDIME
     Indication: Sepsis
     Dosage: 3 G, 1X/DAY
     Route: 042
     Dates: start: 20231230, end: 20240105
  5. CEFTAZIDIME [Suspect]
     Active Substance: CEFTAZIDIME
     Dosage: 3 G, 1X/DAY
     Route: 030
     Dates: start: 20231230, end: 20240105

REACTIONS (3)
  - Rash papular [Recovering/Resolving]
  - Erythema [Recovered/Resolved]
  - Off label use [Unknown]

NARRATIVE: CASE EVENT DATE: 20231227
